FAERS Safety Report 4504134-2 (Version None)
Quarter: 2004Q4

REPORT INFORMATION
  Report Type: 
  Country: None (occurrence: None)
  Receive Date: 20041115
  Receipt Date: 20041102
  Transmission Date: 20050328
  Serious: Yes (Hospitalization)
  Sender: FDA-Public Use
  Company Number: 2004-BP-11141BP

PATIENT
  Age: 66 Year
  Sex: Male

DRUGS (9)
  1. CATAPRES TABLETS (CLONIDINE) [Suspect]
     Indication: HYPERTENSION
     Dosage: 0.2 MG (0.1 MG, 1 TABLET BID), PO
     Route: 048
     Dates: start: 20041001
  2. HYDRALAZINE HCL TAB [Suspect]
     Indication: HYPERTENSION
  3. BENAZEPRIL HCL [Concomitant]
  4. FOLIC ACID [Concomitant]
  5. LABETALOL HCL [Concomitant]
  6. SYNTHOSTATIN [Concomitant]
  7. NITROGLYCERIN [Concomitant]
  8. TYLENOL [Concomitant]
  9. ACETYLSALICYLIC ACID SRT [Concomitant]

REACTIONS (2)
  - BLOOD PRESSURE INADEQUATELY CONTROLLED [None]
  - DRUG INEFFECTIVE [None]
